FAERS Safety Report 8788251 (Version 1)
Quarter: 2012Q4

REPORT INFORMATION
  Report Type: 
  Country: GR (occurrence: GR)
  Receive Date: 20120914
  Receipt Date: 20120914
  Transmission Date: 20130627
  Serious: Yes (Hospitalization)
  Sender: FDA-Public Use
  Company Number: GR-009507513-1209GRC005355

PATIENT

DRUGS (1)
  1. AERIUS [Suspect]
     Dosage: 75 mg, Once
     Route: 048
     Dates: start: 20120911, end: 20120911

REACTIONS (2)
  - Intentional overdose [Unknown]
  - No adverse event [Unknown]
